FAERS Safety Report 4801081-3 (Version None)
Quarter: 2005Q4

REPORT INFORMATION
  Report Type: 
  Country: None (occurrence: None)
  Receive Date: 20051011
  Receipt Date: 20050809
  Transmission Date: 20060501
  Serious: Yes (Other)
  Sender: FDA-Public Use
  Company Number: 530#5#2005-00019

PATIENT
  Age: 72 Year
  Sex: Female

DRUGS (6)
  1. PROSTAVASIN-BLINDED-DRUG (ALPROSTADIL (PAOD)) [Suspect]
     Indication: PERIPHERAL ISCHAEMIA
     Dosage: 1.2 X 40 MCG  PER DAY, INTRAVENOUS DRIP
     Route: 041
     Dates: start: 20050802, end: 20050809
  2. TRAMADOL TABLETS (TRAMADOL) [Concomitant]
  3. ISOSORBIDE MONONITRATE TABLETS (ISOSORBIDE MONONITRATE) [Concomitant]
  4. ACETYLSALICYLIC ACID TABLETS (ACETYLSALICYLIC ACID) [Concomitant]
  5. ENALAPRIL TABLETS ((ENALAPRIL) [Concomitant]
  6. INSULIN HUMAN (INSULIN HUMAN) [Concomitant]

REACTIONS (6)
  - ASTHENIA [None]
  - BLOOD PRESSURE INCREASED [None]
  - DISORIENTATION [None]
  - FALL [None]
  - INFUSION RELATED REACTION [None]
  - PYREXIA [None]
